FAERS Safety Report 18777591 (Version 1)
Quarter: 2021Q1

REPORT INFORMATION
  Report Type: Spontaneous
  Country: US (occurrence: US)
  Receive Date: 20210122
  Receipt Date: 20210122
  Transmission Date: 20210419
  Serious: No
  Sender: FDA-Public Use
  Company Number: US-ELI_LILLY_AND_COMPANY-US202101007262

PATIENT
  Age: 4 Year
  Sex: Male

DRUGS (1)
  1. HUMATROPE [Suspect]
     Active Substance: SOMATROPIN
     Indication: HYPOPITUITARISM
     Dosage: 6 MG, 0.4 MG, DAILY (7 TIMES A WEKK)
     Route: 058

REACTIONS (2)
  - Crying [Unknown]
  - Screaming [Unknown]

NARRATIVE: CASE EVENT DATE: 20210113
